FAERS Safety Report 5076776-X (Version None)
Quarter: 2006Q3

REPORT INFORMATION
  Report Type: 
  Country: None (occurrence: None)
  Receive Date: 20060725
  Receipt Date: 20060511
  Transmission Date: 20061208
  Serious: No
  Sender: FDA-Public Use
  Company Number: 200611057BWH

PATIENT
  Age: 69 Year
  Sex: Male
  Weight: 94.3482 kg

DRUGS (9)
  1. NEXAVAR [Suspect]
     Indication: METASTASES TO LUNG
     Dosage: SEE IMAGE
     Route: 048
     Dates: start: 20060209, end: 20060220
  2. NEXAVAR [Suspect]
     Indication: RENAL CELL CARCINOMA STAGE UNSPECIFIED
     Dosage: SEE IMAGE
     Route: 048
     Dates: start: 20060209, end: 20060220
  3. NEXAVAR [Suspect]
     Dosage: SEE IMAGE
     Route: 048
     Dates: start: 20060301
  4. NEXAVAR [Suspect]
     Dosage: SEE IMAGE
     Route: 048
     Dates: start: 20060301
  5. NEXAVAR [Suspect]
     Dosage: SEE IMAGE
     Route: 048
     Dates: start: 20060301
  6. PROZAC [Concomitant]
  7. MULTIVITAMIN [Concomitant]
  8. CALCIUM GLUCONATE [Concomitant]
  9. FLUOXETINE [Concomitant]

REACTIONS (16)
  - DRY MOUTH [None]
  - GASTROINTESTINAL PAIN [None]
  - GENERALISED ERYTHEMA [None]
  - GLOSSODYNIA [None]
  - HAEMORRHOIDS [None]
  - HEADACHE [None]
  - HYPERTENSION [None]
  - INFLUENZA LIKE ILLNESS [None]
  - MYALGIA [None]
  - ORAL PAIN [None]
  - PAIN [None]
  - PAIN IN EXTREMITY [None]
  - PALMAR-PLANTAR ERYTHRODYSAESTHESIA SYNDROME [None]
  - RASH GENERALISED [None]
  - SKIN EXFOLIATION [None]
  - SKIN LESION [None]
